FAERS Safety Report 7109401-4 (Version None)
Quarter: 2010Q4

REPORT INFORMATION
  Report Type: 
  Country: None (occurrence: None)
  Receive Date: 20101118
  Receipt Date: 20101110
  Transmission Date: 20110411
  Serious: No
  Sender: FDA-Public Use
  Company Number: US-BIOGENIDEC-2010BI020070

PATIENT
  Age: 44 Year
  Sex: Female

DRUGS (1)
  1. TYSABRI [Suspect]
     Indication: MULTIPLE SCLEROSIS
     Route: 042
     Dates: start: 20100604, end: 20100702

REACTIONS (7)
  - CHEST PAIN [None]
  - DRY MOUTH [None]
  - NAUSEA [None]
  - PAIN [None]
  - PALPITATIONS [None]
  - RASH [None]
  - SOMNOLENCE [None]
